FAERS Safety Report 18795240 (Version 1)
Quarter: 2021Q1

REPORT INFORMATION
  Report Type: Spontaneous
  Country: US (occurrence: US)
  Receive Date: 20210127
  Receipt Date: 20210127
  Transmission Date: 20210419
  Serious: No
  Sender: FDA-Public Use
  Company Number: US-TEVA-2021-US-1873534

PATIENT
  Sex: Male

DRUGS (2)
  1. AUTOJECT (DEVICE) [Suspect]
     Active Substance: DEVICE
     Route: 065
  2. COPAXONE [Suspect]
     Active Substance: GLATIRAMER ACETATE
     Dosage: UNKNOWN FORM STRENGTH
     Route: 065

REACTIONS (3)
  - Device issue [Unknown]
  - Incorrect dose administered by device [Unknown]
  - Urticaria [Unknown]
